FAERS Safety Report 5450859-4 (Version None)
Quarter: 2007Q3

REPORT INFORMATION
  Report Type: 
  Country: None (occurrence: None)
  Receive Date: 20070913
  Receipt Date: 20070904
  Transmission Date: 20080115
  Serious: Yes (Hospitalization)
  Sender: FDA-Public Use
  Company Number: PHBS2007AT14588

PATIENT
  Age: 73 Year
  Sex: Female

DRUGS (3)
  1. SPRYCEL [Concomitant]
     Dosage: 70 MG, BID
     Route: 048
     Dates: start: 20061201
  2. IMATINIB MESYLATE [Suspect]
     Indication: CHRONIC MYELOID LEUKAEMIA
     Dosage: 600 MG/D
     Route: 048
     Dates: end: 20060901
  3. IMATINIB MESYLATE [Suspect]
     Dosage: 400 MG/D
     Route: 048
     Dates: start: 20021201

REACTIONS (8)
  - ANAEMIA [None]
  - ASTHENIA [None]
  - DIZZINESS [None]
  - LEUKOENCEPHALOPATHY [None]
  - MICROANGIOPATHY [None]
  - THROMBOCYTOPENIA [None]
  - VERTIGO [None]
  - VISION BLURRED [None]
